FAERS Safety Report 5173725-0 (Version None)
Quarter: 2006Q4

REPORT INFORMATION
  Report Type: 
  Country: None (occurrence: None)
  Receive Date: 20061214
  Receipt Date: 20061201
  Transmission Date: 20070319
  Serious: Yes (Hospitalization)
  Sender: FDA-Public Use
  Company Number: US-ELI_LILLY_AND_COMPANY-US200612000330

PATIENT
  Age: 19 Year
  Sex: Female

DRUGS (7)
  1. CYMBALTA [Suspect]
     Indication: DEPRESSION
     Dosage: 60 MG, UNK
     Dates: start: 20061101
  2. EFFEXOR [Concomitant]
     Dosage: 75 MG, UNK
  3. LITHIUM CARBONATE [Concomitant]
     Dosage: 1350 MG, UNK
  4. LAMICTAL [Concomitant]
     Dosage: 350 MG, UNK
  5. KLONOPIN [Concomitant]
     Dosage: 2 MG, UNK
  6. THYROID TAB [Concomitant]
  7. TEMAZEPAM [Concomitant]
     Dosage: 60 MG, UNK

REACTIONS (1)
  - DEPRESSION [None]
